FAERS Safety Report 20998707 (Version 1)
Quarter: 2022Q2

REPORT INFORMATION
  Report Type: Spontaneous
  Country: US (occurrence: None)
  Receive Date: 20220623
  Receipt Date: 20220623
  Transmission Date: 20220720
  Serious: No
  Sender: FDA-Public Use
  Company Number: None

PATIENT
  Age: 50 Year
  Sex: Male

DRUGS (1)
  1. SUNITINIB [Suspect]
     Active Substance: SUNITINIB
     Dosage: 37.5MG DAILY ORAL?
     Route: 048

REACTIONS (3)
  - Diarrhoea [None]
  - Chest wall abscess [None]
  - Therapy interrupted [None]

NARRATIVE: CASE EVENT DATE: 20220623
